FAERS Safety Report 16384580 (Version 1)
Quarter: 2019Q2

REPORT INFORMATION
  Report Type: Spontaneous
  Country: US (occurrence: US)
  Receive Date: 20190426
  Receipt Date: 20190426
  Transmission Date: 20190711
  Serious: Yes (Disabling)
  Sender: FDA-Public Use
  Company Number: None

PATIENT
  Age: 79 Year
  Sex: Female
  Weight: 65.32 kg

DRUGS (7)
  1. VD3 [Concomitant]
  2. CENTRIUM SILVER [Concomitant]
  3. NEXIUM [Concomitant]
     Active Substance: ESOMEPRAZOLE MAGNESIUM
  4. ASPIRIN. [Concomitant]
     Active Substance: ASPIRIN
  5. PRALUENT [Suspect]
     Active Substance: ALIROCUMAB
     Indication: BLOOD CHOLESTEROL INCREASED
     Dosage: ?          QUANTITY:150 MG/ML - MILLLIGRAMS PER MILLILITRES;OTHER FREQUENCY:TWICE A MONTH/THUR;?
     Route: 058
     Dates: start: 20181011
  6. MAGNESIUM [Concomitant]
     Active Substance: MAGNESIUM
  7. STOOL SOFTENER (DOCUSATE) [Concomitant]
     Active Substance: DOCUSATE

REACTIONS (4)
  - Dizziness [None]
  - Blood pressure decreased [None]
  - Somnolence [None]
  - Heart rate irregular [None]

NARRATIVE: CASE EVENT DATE: 20181021
